FAERS Safety Report 11626725 (Version 1)
Quarter: 2015Q4

REPORT INFORMATION
  Report Type: Spontaneous
  Country: US (occurrence: US)
  Receive Date: 20151013
  Receipt Date: 20151013
  Transmission Date: 20160304
  Serious: No
  Sender: FDA-Public Use
  Company Number: US-INDIVIOR-RB-082330-2015

PATIENT
  Age: 67 Year
  Sex: Male

DRUGS (3)
  1. LIDOCAINE MOUTHWASH [Concomitant]
     Indication: ORAL PAIN
     Dosage: VARIOUS DOSES
     Route: 048
     Dates: start: 201508
  2. SUBOXONE [Suspect]
     Active Substance: BUPRENORPHINE HYDROCHLORIDE\NALOXONE HYDROCHLORIDE
     Indication: DRUG DEPENDENCE
     Dosage: 4 MG, QD
     Route: 060
     Dates: start: 2010, end: 2013
  3. SUBOXONE [Suspect]
     Active Substance: BUPRENORPHINE HYDROCHLORIDE\NALOXONE HYDROCHLORIDE
     Indication: DRUG DEPENDENCE
     Dosage: 4 MG, QD
     Route: 060
     Dates: start: 2013

REACTIONS (5)
  - Tongue ulceration [Recovered/Resolved]
  - Oral pain [Recovered/Resolved]
  - Mouth ulceration [Recovered/Resolved]
  - Energy increased [Unknown]
  - Product preparation error [Recovered/Resolved]

NARRATIVE: CASE EVENT DATE: 2013
